FAERS Safety Report 19668475 (Version 3)
Quarter: 2021Q4

REPORT INFORMATION
  Report Type: Spontaneous
  Country: JP (occurrence: JP)
  Receive Date: 20210806
  Receipt Date: 20211025
  Transmission Date: 20220303
  Serious: Yes (Hospitalization, Disabling, Other)
  Sender: FDA-Public Use
  Company Number: JP-SYNEX-T202103474

PATIENT
  Sex: Female
  Weight: 3 kg

DRUGS (4)
  1. NITRIC OXIDE [Suspect]
     Active Substance: NITRIC OXIDE
     Indication: Newborn persistent pulmonary hypertension
     Dosage: 20 PPM (INHALATION), STARTED 15 HOURS AFTER DELIVERY TO AGE OF 14 DAYS
     Route: 055
     Dates: start: 20200811, end: 202008
  2. NITRIC OXIDE [Suspect]
     Active Substance: NITRIC OXIDE
     Dosage: 0.5 PPM, TAPERED (INHALATION)
     Route: 055
     Dates: start: 202008, end: 20200824
  3. BOSENTAN [Suspect]
     Active Substance: BOSENTAN
     Indication: Pulmonary hypertension
     Dosage: 1.35 MILLIGRAM, TID (STARTED AT 7 DAYS OF AGE TO DAY11)
     Route: 048
     Dates: start: 20200817, end: 202008
  4. BOSENTAN [Suspect]
     Active Substance: BOSENTAN
     Dosage: UNK (TAPERED)
     Route: 048
     Dates: start: 202008, end: 20200821

REACTIONS (5)
  - Pulmonary congestion [Recovered/Resolved]
  - Neonatal hypotension [Unknown]
  - Alveolar capillary dysplasia [Unknown]
  - Condition aggravated [Unknown]
  - Therapy non-responder [Unknown]

NARRATIVE: CASE EVENT DATE: 20000903
